FAERS Safety Report 6997234-9 (Version None)
Quarter: 2010Q3

REPORT INFORMATION
  Report Type: 
  Country: None (occurrence: None)
  Receive Date: 20100918
  Receipt Date: 20090922
  Transmission Date: 20110219
  Serious: No
  Sender: FDA-Public Use
  Company Number: US-WYE-H11158409

PATIENT
  Sex: Female
  Weight: 65.83 kg

DRUGS (3)
  1. PRISTIQ [Suspect]
     Indication: ANXIETY
     Route: 048
     Dates: start: 20090401
  2. ESTROTEST [Concomitant]
  3. VIVELLE [Concomitant]

REACTIONS (4)
  - COUGH [None]
  - GASTROOESOPHAGEAL REFLUX DISEASE [None]
  - RASH PRURITIC [None]
  - URTICARIA [None]
